FAERS Safety Report 12682765 (Version 1)
Quarter: 2016Q3

REPORT INFORMATION
  Report Type: Spontaneous
  Country: US (occurrence: US)
  Receive Date: 20160825
  Receipt Date: 20160825
  Transmission Date: 20161109
  Serious: No
  Sender: FDA-Public Use
  Company Number: US-DENTSPLY PHARMACEUTICAL-2015SCDP000041

PATIENT
  Age: 65 Year
  Sex: Female

DRUGS (2)
  1. ORAQIX [Suspect]
     Active Substance: LIDOCAINE\PRILOCAINE
     Indication: LOCAL ANAESTHESIA
     Dosage: 1/2 CARTRIDGE (OF 1.7 ML)
     Route: 061
     Dates: start: 20150511, end: 20150511
  2. ORAQIX [Suspect]
     Active Substance: LIDOCAINE\PRILOCAINE
     Indication: ENDODONTIC PROCEDURE

REACTIONS (2)
  - Urticaria [Recovered/Resolved]
  - Hypersensitivity [Recovered/Resolved]

NARRATIVE: CASE EVENT DATE: 20150511
